FAERS Safety Report 19419238 (Version 1)
Quarter: 2021Q2

REPORT INFORMATION
  Report Type: Spontaneous
  Country: JP (occurrence: JP)
  Receive Date: 20210615
  Receipt Date: 20210615
  Transmission Date: 20210717
  Serious: Yes (Hospitalization, Other)
  Sender: FDA-Public Use
  Company Number: JP-ACACIA PHARMA LIMITED-2112745

PATIENT
  Age: 32 Year
  Sex: Male

DRUGS (5)
  1. REMIFENTANIL HYDROCHLORIDE. [Concomitant]
     Active Substance: REMIFENTANIL HYDROCHLORIDE
     Route: 042
     Dates: start: 20200820, end: 20200820
  2. ROCURONIUM [Concomitant]
     Active Substance: ROCURONIUM BROMIDE
     Route: 065
     Dates: start: 20200820, end: 20200820
  3. DESFLURANE. [Concomitant]
     Active Substance: DESFLURANE
     Route: 055
     Dates: start: 20200820, end: 20200820
  4. FENTANYL. [Concomitant]
     Active Substance: FENTANYL
     Route: 042
     Dates: start: 20200820, end: 20200820
  5. BYFAVO [Suspect]
     Active Substance: REMIMAZOLAM BESYLATE
     Indication: GENERAL ANAESTHESIA
     Route: 042
     Dates: start: 20200820, end: 20200820

REACTIONS (2)
  - Anaphylactic shock [Recovered/Resolved]
  - Laryngeal oedema [Recovered/Resolved]

NARRATIVE: CASE EVENT DATE: 20200820
